FAERS Safety Report 14248469 (Version 2)
Quarter: 2018Q1

REPORT INFORMATION
  Report Type: Report from Study
  Country: PL (occurrence: PL)
  Receive Date: 20171204
  Receipt Date: 20180109
  Transmission Date: 20180508
  Serious: Yes (Life-Threatening, Hospitalization)
  Sender: FDA-Public Use
  Company Number: PL-AMGEN-POLCT2017167554

PATIENT
  Age: 57 Year
  Sex: Female

DRUGS (17)
  1. POLOCARD [Concomitant]
     Active Substance: ASPIRIN
     Dosage: 75 MG, UNK
     Route: 048
     Dates: start: 20131202, end: 20171012
  2. DEXAMETHASONE. [Suspect]
     Active Substance: DEXAMETHASONE
     Indication: PLASMA CELL MYELOMA
     Dosage: UNK MG, PER CHEMO REGIM
     Route: 065
     Dates: start: 20160707
  3. VIGANTOL [Concomitant]
     Active Substance: CHOLECALCIFEROL
     Dosage: 4 GTT, UNK
     Route: 048
     Dates: start: 20150616, end: 20171012
  4. CALPEROS [Concomitant]
     Active Substance: CALCIUM CARBONATE
     Dosage: 1 G, UNK
     Route: 048
     Dates: start: 20121202, end: 20171012
  5. CLEXANE [Concomitant]
     Active Substance: ENOXAPARIN SODIUM
     Dosage: 1 UNK, UNK
     Route: 058
     Dates: start: 201710, end: 201710
  6. APAP [Concomitant]
     Active Substance: ACETAMINOPHEN
     Dosage: 1 UNK, UNK
     Route: 048
     Dates: start: 201710, end: 201710
  7. NEOPARIN [Concomitant]
     Dosage: 40 MG, UNK
     Route: 058
     Dates: start: 20160707, end: 20171011
  8. METOPROLOL TARTRATE. [Concomitant]
     Active Substance: METOPROLOL TARTRATE
     Dosage: 50 MG, UNK
     Route: 048
     Dates: start: 20150108, end: 20171012
  9. ACIDUM ZOLEDRONICUM [Concomitant]
     Dosage: 4 MG, UNK
     Route: 042
     Dates: start: 20141002, end: 20171012
  10. TRIFAS [Concomitant]
     Dosage: 1 UNK, UNK
     Route: 048
     Dates: start: 201710, end: 201710
  11. EUTHYROX [Concomitant]
     Active Substance: LEVOTHYROXINE SODIUM
     Dosage: 1 UNK, UNK
     Route: 048
     Dates: start: 201710, end: 201710
  12. MORPHINE [Concomitant]
     Active Substance: MORPHINE
     Dosage: 1 MG, UNK
     Route: 058
     Dates: start: 201710, end: 201710
  13. LEVOXA [Concomitant]
     Active Substance: LEVOFLOXACIN
     Dosage: 500 MG AND 500 UNK, UNK
     Route: 048
     Dates: start: 20170720, end: 20171007
  14. TRAMAL [Concomitant]
     Active Substance: TRAMADOL
     Dosage: 1 MG, UNK
     Route: 048
     Dates: start: 201710, end: 201710
  15. KLARMIN [Concomitant]
     Dosage: 1 MG, UNK
     Route: 042
     Dates: start: 201710, end: 201710
  16. CEFTRIAXON [Concomitant]
     Active Substance: CEFTRIAXONE
     Dosage: 1 G, UNK
     Route: 042
     Dates: start: 201710, end: 201710
  17. CARFILZOMIB [Suspect]
     Active Substance: CARFILZOMIB
     Indication: PLASMA CELL MYELOMA
     Dosage: UNK MG, PER CHEMO REGIM
     Route: 042
     Dates: start: 20160707

REACTIONS (1)
  - Pulmonary embolism [Recovered/Resolved]

NARRATIVE: CASE EVENT DATE: 20171012
